FAERS Safety Report 8797797 (Version 1)
Quarter: 2012Q4

REPORT INFORMATION
  Report Type: 
  Country: US (occurrence: US)
  Receive Date: 20120919
  Receipt Date: 20120919
  Transmission Date: 20130627
  Serious: Yes (Hospitalization)
  Sender: FDA-Public Use
  Company Number: US-ROCHE-1124219

PATIENT
  Age: 63 Year
  Sex: Male
  Weight: 90.48 kg

DRUGS (8)
  1. PEGASYS [Suspect]
     Indication: HEPATITIS C
     Route: 058
     Dates: start: 20120330, end: 20120615
  2. PEGASYS [Suspect]
     Route: 058
     Dates: start: 20120622
  3. INDERAL [Concomitant]
  4. MULTIVITAMIN [Concomitant]
  5. RIBAVIRIN [Concomitant]
     Route: 065
     Dates: start: 201203
  6. TELAPREVIR [Concomitant]
     Route: 065
     Dates: start: 201203
  7. PROCRIT [Concomitant]
     Route: 065
     Dates: start: 201205
  8. AUGMENTIN [Concomitant]
     Dosage: 875/125 mg for 10 days
     Route: 065

REACTIONS (5)
  - Atrial fibrillation [Unknown]
  - Cellulitis [Unknown]
  - Hepatic encephalopathy [Unknown]
  - Anaemia [Unknown]
  - Chronic hepatitis C [Unknown]
